FAERS Safety Report 5638238-8 (Version None)
Quarter: 2008Q1

REPORT INFORMATION
  Report Type: 
  Country: None (occurrence: None)
  Receive Date: 20080221
  Receipt Date: 20080213
  Transmission Date: 20080703
  Serious: Yes (Death)
  Sender: FDA-Public Use
  Company Number: TPA2008A00203

PATIENT
  Age: 20 Year
  Sex: Male

DRUGS (6)
  1. ROZEREM [Suspect]
     Indication: DRUG USE FOR UNKNOWN INDICATION
     Dosage: PER ORAL
     Route: 048
  2. ALPRAZOLAM [Suspect]
     Dosage: PER ORAL
     Route: 048
  3. PREGABALIN (PREGABALIN) [Suspect]
     Dosage: PER ORAL
     Route: 048
  4. ESZOPICLONE (ESZOPICLONE) [Suspect]
     Dosage: PER ORAL
     Route: 048
  5. VENLAFAXINE HCL [Suspect]
     Dosage: PER ORAL
     Route: 048
  6. VALPROIC ACID [Suspect]
     Dosage: PER ORAL
     Route: 048

REACTIONS (1)
  - COMPLETED SUICIDE [None]
